FAERS Safety Report 13588565 (Version 1)
Quarter: 2017Q2

REPORT INFORMATION
  Report Type: Report from Study
  Country: US (occurrence: US)
  Receive Date: 20170529
  Receipt Date: 20170529
  Transmission Date: 20170830
  Serious: Yes (Hospitalization)
  Sender: FDA-Public Use
  Company Number: US-ROCHE-1938683

PATIENT
  Age: 22 Year
  Sex: Male
  Weight: 51.2 kg

DRUGS (6)
  1. ZOLOFT [Concomitant]
     Active Substance: SERTRALINE HYDROCHLORIDE
     Route: 048
  2. KEPPRA [Concomitant]
     Active Substance: LEVETIRACETAM
     Route: 048
  3. CARBOXYMETHYLCELLULOSE SODIUM/GLYCERIN [Concomitant]
     Dosage: PF, (REFRESH OPTIVE) 0.5-0.9% OPHTHALMIC SOLUTION
     Route: 065
  4. HYDRODIURIL [Concomitant]
     Active Substance: HYDROCHLOROTHIAZIDE
     Route: 048
  5. BEVACIZUMAB [Suspect]
     Active Substance: BEVACIZUMAB
     Indication: ACOUSTIC NEUROMA
     Route: 042
     Dates: start: 20170307, end: 20170418
  6. VITAMIN A [Concomitant]
     Active Substance: VITAMIN A

REACTIONS (4)
  - Empyema [Unknown]
  - Pneumonia necrotising [Unknown]
  - Cough [Unknown]
  - Pyrexia [Recovered/Resolved]

NARRATIVE: CASE EVENT DATE: 20170428
